FAERS Safety Report 6655486-9 (Version None)
Quarter: 2010Q1

REPORT INFORMATION
  Report Type: 
  Country: None (occurrence: None)
  Receive Date: 20100329
  Receipt Date: 20091218
  Transmission Date: 20100710
  Serious: Yes (Other)
  Sender: FDA-Public Use
  Company Number: US-JNJFOC-20090306544

PATIENT
  Age: 50 Year
  Sex: Female
  Weight: 63.5 kg

DRUGS (6)
  1. LEVAQUIN [Suspect]
     Indication: RESPIRATORY TRACT INFECTION
     Route: 048
  2. CELEBREX [Concomitant]
     Indication: ARTHRALGIA
     Route: 048
  3. VITAMIN B COMPLEX TAB [Concomitant]
     Indication: NUTRITIONAL SUPPORT
     Route: 048
  4. MAGNESIUM [Concomitant]
     Indication: NUTRITIONAL SUPPORT
     Route: 048
  5. VITAMIN D [Concomitant]
     Indication: NUTRITIONAL SUPPORT
     Route: 048
  6. VITAMINS [Concomitant]
     Indication: NUTRITIONAL SUPPORT
     Route: 048

REACTIONS (17)
  - ABNORMAL FAECES [None]
  - ANORECTAL DISCOMFORT [None]
  - ANXIETY [None]
  - BLADDER PAIN [None]
  - BLOOD GLUCOSE DECREASED [None]
  - BODY TEMPERATURE DECREASED [None]
  - GOITRE [None]
  - HAEMORRHOIDS [None]
  - HYPOAESTHESIA [None]
  - INCREASED APPETITE [None]
  - MUCOUS STOOLS [None]
  - MUSCULAR WEAKNESS [None]
  - RESTLESSNESS [None]
  - TREMOR [None]
  - VULVOVAGINAL DISCOMFORT [None]
  - VULVOVAGINAL PAIN [None]
  - WEIGHT DECREASED [None]
